FAERS Safety Report 11136202 (Version 1)
Quarter: 2015Q2

REPORT INFORMATION
  Report Type: Spontaneous
  Country: US (occurrence: US)
  Receive Date: 20150526
  Receipt Date: 20150526
  Transmission Date: 20150821
  Serious: Yes (Other)
  Sender: FDA-Public Use
  Company Number: US-HOSPIRA-2869762

PATIENT
  Age: 26 Week
  Sex: Female
  Weight: 1.46 kg

DRUGS (2)
  1. HYDROCORTISONE. [Suspect]
     Active Substance: HYDROCORTISONE
     Indication: HYPOTENSION
     Dosage: 15 MG/M2/DAY, DAILY
  2. HYDROCORTISONE. [Suspect]
     Active Substance: HYDROCORTISONE
     Indication: HYPOTENSION
     Dosage: 20 MG/M2/DAY, DAILY

REACTIONS (1)
  - Adrenal insufficiency [Recovered/Resolved]
